FAERS Safety Report 8269427-4 (Version None)
Quarter: 2012Q2

REPORT INFORMATION
  Report Type: 
  Country: None (occurrence: None)
  Receive Date: 20120409
  Receipt Date: 20120301
  Transmission Date: 20120825
  Serious: No
  Sender: FDA-Public Use
  Company Number: US-ASTRAZENECA-2012SE14400

PATIENT
  Age: 82 Year
  Sex: Male

DRUGS (7)
  1. LISINOPRIL [Concomitant]
  2. ADVAIR DISKUS 100/50 [Concomitant]
  3. NITROGLYCERIN [Concomitant]
     Dosage: PRN
  4. BRILINTA [Suspect]
     Route: 048
  5. ASPIRIN [Concomitant]
  6. BRILINTA [Suspect]
     Route: 048
  7. PLAVIX [Concomitant]

REACTIONS (2)
  - INSOMNIA [None]
  - DYSPNOEA [None]
